FAERS Safety Report 4290921-5 (Version None)
Quarter: 2004Q1

REPORT INFORMATION
  Report Type: 
  Country: None (occurrence: None)
  Receive Date: 20040206
  Receipt Date: 20040206
  Transmission Date: 20041129
  Serious: No
  Sender: FDA-Public Use
  Company Number: None

PATIENT
  Sex: Male

DRUGS (1)
  1. DEPAKOTE [Suspect]
     Indication: ABNORMAL BEHAVIOUR

REACTIONS (2)
  - ABDOMINAL DISCOMFORT [None]
  - PANCREATITIS CHRONIC [None]
